FAERS Safety Report 6669238-7 (Version None)
Quarter: 2010Q2

REPORT INFORMATION
  Report Type: 
  Country: None (occurrence: None)
  Receive Date: 20100402
  Receipt Date: 20100323
  Transmission Date: 20101027
  Serious: Yes (Other)
  Sender: FDA-Public Use
  Company Number: 233075J10USA

PATIENT
  Age: 63 Year
  Sex: Female

DRUGS (1)
  1. REBIF [Suspect]
     Indication: MULTIPLE SCLEROSIS
     Dosage: 44 MCG, 2 IN 1 WEEKS. SUBCUTANEOUS
     Route: 058
     Dates: start: 20060327

REACTIONS (9)
  - COUGH [None]
  - DRUG ADMINISTRATION ERROR [None]
  - INJECTION SITE ERYTHEMA [None]
  - INJECTION SITE HAEMATOMA [None]
  - POST PROCEDURAL HAEMORRHAGE [None]
  - SNEEZING [None]
  - STRESS URINARY INCONTINENCE [None]
  - URINARY TRACT INFECTION [None]
  - VAGINAL HAEMORRHAGE [None]
